FAERS Safety Report 5674832-6 (Version None)
Quarter: 2008Q1

REPORT INFORMATION
  Report Type: 
  Country: None (occurrence: None)
  Receive Date: 20080319
  Receipt Date: 20080319
  Transmission Date: 20080703
  Serious: Yes (Hospitalization)
  Sender: FDA-Public Use
  Company Number: None

PATIENT
  Age: 14 Year
  Sex: Male
  Weight: 42.6381 kg

DRUGS (1)
  1. INVEGA [Suspect]
     Indication: ASPERGER'S DISORDER
     Dosage: 3 MGS 1 TIME AT BEDTIME
     Dates: start: 20080308, end: 20080312

REACTIONS (8)
  - DYSKINESIA [None]
  - EPISTAXIS [None]
  - HEADACHE [None]
  - MUSCULOSKELETAL STIFFNESS [None]
  - MYALGIA [None]
  - NEUROLEPTIC MALIGNANT SYNDROME [None]
  - PYREXIA [None]
  - WITHDRAWAL SYNDROME [None]
